FAERS Safety Report 4782588-4 (Version None)
Quarter: 2005Q3

REPORT INFORMATION
  Report Type: 
  Country: None (occurrence: None)
  Receive Date: 20050929
  Receipt Date: 20050411
  Transmission Date: 20060218
  Serious: No
  Sender: FDA-Public Use
  Company Number: 401692

PATIENT
  Sex: Male

DRUGS (8)
  1. COREG [Suspect]
     Indication: DRUG USE FOR UNKNOWN INDICATION
     Route: 048
  2. ASPIRIN [Suspect]
     Indication: DRUG USE FOR UNKNOWN INDICATION
     Dosage: 81MG UNKNOWN
     Route: 065
  3. ENALAPRIL [Suspect]
     Indication: DRUG USE FOR UNKNOWN INDICATION
     Route: 065
  4. PEPCID [Suspect]
     Indication: DRUG USE FOR UNKNOWN INDICATION
     Route: 065
  5. TRICOR [Suspect]
     Indication: DRUG USE FOR UNKNOWN INDICATION
  6. LIPITOR [Suspect]
     Indication: DRUG USE FOR UNKNOWN INDICATION
  7. LASIX [Suspect]
     Indication: DRUG USE FOR UNKNOWN INDICATION
  8. MULTIVITAMIN [Concomitant]

REACTIONS (1)
  - FLATULENCE [None]
